FAERS Safety Report 10591834 (Version 1)
Quarter: 2014Q4

REPORT INFORMATION
  Report Type: Spontaneous
  Country: US (occurrence: US)
  Receive Date: 20141118
  Receipt Date: 20141118
  Transmission Date: 20150529
  Serious: Yes (Other)
  Sender: FDA-Public Use
  Company Number: US-RANBAXY-2014US-87865

PATIENT
  Age: 19 Year
  Sex: Male

DRUGS (2)
  1. LORATADINE. [Suspect]
     Active Substance: LORATADINE
     Indication: SINUSITIS
     Dosage: UNK
     Route: 065
     Dates: start: 20141101
  2. ZITHROMAX [Suspect]
     Active Substance: AZITHROMYCIN DIHYDRATE
     Indication: SINUSITIS
     Dosage: UNK
     Route: 065
     Dates: start: 20141101

REACTIONS (5)
  - Agitation [Unknown]
  - Hyperhidrosis [Unknown]
  - Decreased appetite [Unknown]
  - Hallucination [Unknown]
  - Mydriasis [Unknown]

NARRATIVE: CASE EVENT DATE: 20141103
